FAERS Safety Report 25605210 (Version 1)
Quarter: 2025Q3

REPORT INFORMATION
  Report Type: Spontaneous
  Country: EU (occurrence: EU)
  Receive Date: 20250725
  Receipt Date: 20250725
  Transmission Date: 20251021
  Serious: Yes (Death, Other)
  Sender: ASTELLAS
  Company Number: EU-AFSSAPS-MA2024001546

PATIENT
  Age: 27 Year
  Sex: Female
  Weight: 50 kg

DRUGS (2)
  1. AMPHOTERICIN B [Suspect]
     Active Substance: AMPHOTERICIN B
     Indication: Bronchopulmonary aspergillosis
     Route: 065
  2. FUNGIZONE [Suspect]
     Active Substance: AMPHOTERICIN B
     Indication: Wrong product administered
     Route: 050
     Dates: start: 20240912

REACTIONS (2)
  - Hyperkalaemia [Fatal]
  - Wrong product administered [Fatal]

NARRATIVE: CASE EVENT DATE: 20240912
